FAERS Safety Report 12376339 (Version 1)
Quarter: 2016Q2

REPORT INFORMATION
  Report Type: Spontaneous
  Country: US (occurrence: US)
  Receive Date: 20160517
  Receipt Date: 20160517
  Transmission Date: 20160815
  Serious: No
  Sender: FDA-Public Use
  Company Number: US-PFIZER INC-2016256772

PATIENT

DRUGS (2)
  1. ADVIL [Suspect]
     Active Substance: IBUPROFEN
     Indication: PAIN
     Dosage: 2 DF, UNK (TOOK 2 BEFORE PRACTICE)
  2. ADVIL [Suspect]
     Active Substance: IBUPROFEN
     Indication: WEIGHT DECREASED

REACTIONS (2)
  - Weight decreased [Unknown]
  - Gastric disorder [Unknown]
